FAERS Safety Report 7420406-6 (Version None)
Quarter: 2011Q2

REPORT INFORMATION
  Report Type: 
  Country: None (occurrence: None)
  Receive Date: 20110418
  Receipt Date: 20110413
  Transmission Date: 20111010
  Serious: No
  Sender: FDA-Public Use
  Company Number: US-PFIZER INC-2011081445

PATIENT

DRUGS (1)
  1. LYRICA [Suspect]
     Dosage: 75 MG, UNK

REACTIONS (2)
  - DIARRHOEA [None]
  - DEFAECATION URGENCY [None]
